FAERS Safety Report 19839157 (Version 1)
Quarter: 2021Q3

REPORT INFORMATION
  Report Type: Spontaneous
  Country: US (occurrence: US)
  Receive Date: 20210915
  Receipt Date: 20210915
  Transmission Date: 20211014
  Serious: Yes (Hospitalization)
  Sender: FDA-Public Use
  Company Number: None

PATIENT
  Sex: Female

DRUGS (13)
  1. ROSUVASTATIN. [Concomitant]
     Active Substance: ROSUVASTATIN
  2. KETOCONAZOLE. [Concomitant]
     Active Substance: KETOCONAZOLE
  3. MONTELUKAST [Concomitant]
     Active Substance: MONTELUKAST SODIUM
  4. POT CHLORIDE [Concomitant]
     Active Substance: POTASSIUM CHLORIDE
  5. STIOLTO RESPIMAT [Concomitant]
     Active Substance: OLODATEROL HYDROCHLORIDE\TIOTROPIUM BROMIDE MONOHYDRATE
  6. IRON [Concomitant]
     Active Substance: IRON
  7. NUCALA [Suspect]
     Active Substance: MEPOLIZUMAB
     Indication: RHINITIS
     Dosage: ?          OTHER FREQUENCY:Q4WKS;?
     Route: 058
     Dates: start: 20180612
  8. FLUTICASONE. [Concomitant]
     Active Substance: FLUTICASONE
  9. NYSTOP [Concomitant]
     Active Substance: NYSTATIN
  10. BUMETANIDE. [Concomitant]
     Active Substance: BUMETANIDE
  11. SSD [Concomitant]
     Active Substance: SILVER SULFADIAZINE
  12. ELIQUIS [Concomitant]
     Active Substance: APIXABAN
  13. TORSEMIDE. [Concomitant]
     Active Substance: TORSEMIDE

REACTIONS (1)
  - Pneumonia [None]
